FAERS Safety Report 15888821 (Version 1)
Quarter: 2019Q1

REPORT INFORMATION
  Report Type: Spontaneous
  Country: US (occurrence: US)
  Receive Date: 20190129
  Receipt Date: 20190129
  Transmission Date: 20190417
  Serious: Yes (Disabling)
  Sender: FDA-Public Use
  Company Number: None

PATIENT
  Age: 54 Year
  Sex: Female
  Weight: 86.85 kg

DRUGS (14)
  1. HYDROXYCHLOROQUINE [Suspect]
     Active Substance: HYDROXYCHLOROQUINE
     Indication: SJOGREN^S SYNDROME
     Dosage: ?          QUANTITY:2 TABLET(S);?
     Route: 048
  2. AZATHIOPRINE. [Concomitant]
     Active Substance: AZATHIOPRINE
  3. PANTOPRAZOLE [Concomitant]
     Active Substance: PANTOPRAZOLE
  4. POT CHLORIDE [Concomitant]
     Active Substance: POTASSIUM CHLORIDE
  5. SYSTANE ULTRA DROPS [Concomitant]
  6. VITAMIN D [Concomitant]
     Active Substance: CHOLECALCIFEROL
  7. AREDS PRESER VISION [Concomitant]
  8. MULTI VITAMIN [Concomitant]
     Active Substance: VITAMINS
  9. RESTASIS [Concomitant]
     Active Substance: CYCLOSPORINE
  10. ZOLPIDEN TARTRATE [Concomitant]
  11. CITRACAL [Concomitant]
     Active Substance: CALCIUM CITRATE
  12. NIGHT TIME LUDE FOR EYES [Concomitant]
  13. CARVEDILOL. [Concomitant]
     Active Substance: CARVEDILOL
  14. VENTAFAXINE [Concomitant]

REACTIONS (4)
  - Cataract [None]
  - Migraine with aura [None]
  - Visual impairment [None]
  - Toxicity to various agents [None]

NARRATIVE: CASE EVENT DATE: 20181209
